FAERS Safety Report 21626860 (Version 1)
Quarter: 2022Q4

REPORT INFORMATION
  Report Type: Spontaneous
  Country: US (occurrence: US)
  Receive Date: 20221122
  Receipt Date: 20221122
  Transmission Date: 20230113
  Serious: No
  Sender: FDA-Public Use
  Company Number: US-JNJFOC-20221138207

PATIENT
  Age: 38 Year
  Sex: Male
  Weight: 63.5 kg

DRUGS (6)
  1. IMODIUM [Suspect]
     Active Substance: LOPERAMIDE HYDROCHLORIDE
     Indication: Diarrhoea
     Route: 065
  2. TREPROSTINIL [Suspect]
     Active Substance: TREPROSTINIL
     Indication: Pulmonary arterial hypertension
     Dosage: UNK MG
     Route: 048
     Dates: start: 20220929
  3. TREPROSTINIL [Suspect]
     Active Substance: TREPROSTINIL
     Dosage: UNK MG
     Route: 048
  4. ORENITRAM [Suspect]
     Active Substance: TREPROSTINIL
     Indication: Pulmonary arterial hypertension
     Dosage: 0.125 MG, 0.25 MG, 2.5 MG
     Route: 065
  5. TADALAFIL [Concomitant]
     Active Substance: TADALAFIL
  6. OPSUMIT [Concomitant]
     Active Substance: MACITENTAN

REACTIONS (9)
  - Headache [Not Recovered/Not Resolved]
  - Nausea [Unknown]
  - Fatigue [Unknown]
  - Limb discomfort [Unknown]
  - Depressed mood [Unknown]
  - Dizziness [Unknown]
  - Diarrhoea [Not Recovered/Not Resolved]
  - Dyspnoea [Unknown]
  - Constipation [Unknown]

NARRATIVE: CASE EVENT DATE: 20220101
